FAERS Safety Report 8234187-X (Version None)
Quarter: 2012Q1

REPORT INFORMATION
  Report Type: 
  Country: None (occurrence: None)
  Receive Date: 20120326
  Receipt Date: 20120322
  Transmission Date: 20120608
  Serious: Yes (Life-Threatening, Hospitalization)
  Sender: FDA-Public Use
  Company Number: NZ-B.I. PHARMACEUTICALS,INC./RIDGEFIELD-2012-AU-00634AU

PATIENT

DRUGS (1)
  1. PRADAXA [Suspect]

REACTIONS (2)
  - EXTRADURAL HAEMATOMA [None]
  - PAIN [None]
